FAERS Safety Report 20363454 (Version 1)
Quarter: 2022Q1

REPORT INFORMATION
  Report Type: Spontaneous
  Country: US (occurrence: US)
  Receive Date: 20220121
  Receipt Date: 20220121
  Transmission Date: 20220423
  Serious: Yes (Hospitalization)
  Sender: FDA-Public Use
  Company Number: US-JNJFOC-20220130194

PATIENT
  Age: 63 Year
  Sex: Male
  Weight: 64.5 kg

DRUGS (6)
  1. REMICADE [Suspect]
     Active Substance: INFLIXIMAB
     Indication: Pneumonitis
     Route: 042
  2. PREDNISONE [Concomitant]
     Active Substance: PREDNISONE
     Indication: Pneumonitis
  3. OXYGEN [Concomitant]
     Active Substance: OXYGEN
     Indication: Pneumonitis
  4. VANCOMYCIN [Concomitant]
     Active Substance: VANCOMYCIN
  5. CEFEPIME [Concomitant]
     Active Substance: CEFEPIME HYDROCHLORIDE
  6. AZITHROMYCIN [Concomitant]
     Active Substance: AZITHROMYCIN

REACTIONS (6)
  - Pleuritic pain [Recovering/Resolving]
  - Tachypnoea [Recovering/Resolving]
  - Cough [Recovering/Resolving]
  - Dyspnoea [Recovering/Resolving]
  - Off label use [Unknown]
  - Product use in unapproved indication [Unknown]
